FAERS Safety Report 8368415-7 (Version None)
Quarter: 2012Q2

REPORT INFORMATION
  Report Type: 
  Country: None (occurrence: None)
  Receive Date: 20120517
  Receipt Date: 20120508
  Transmission Date: 20120825
  Serious: Yes (Hospitalization, Other)
  Sender: FDA-Public Use
  Company Number: US-ELI_LILLY_AND_COMPANY-US201010003222

PATIENT
  Sex: Female

DRUGS (19)
  1. FORTEO [Suspect]
     Indication: OSTEOPOROSIS
     Dosage: 20 UG, QD
     Route: 065
     Dates: start: 20100908
  2. MULTI-VITAMIN [Concomitant]
     Dosage: UNK, UNKNOWN
     Route: 065
  3. B6 [Concomitant]
     Dosage: UNK, UNKNOWN
     Route: 065
  4. LANOXIN [Concomitant]
     Dosage: UNK, UNKNOWN
     Route: 065
  5. COUMADIN [Concomitant]
     Dosage: UNK, UNKNOWN
     Route: 065
  6. PEPCID [Concomitant]
     Dosage: UNK, QD
     Route: 065
  7. FORTEO [Suspect]
     Dosage: 20 UG, QD
     Route: 065
  8. FORTEO [Suspect]
     Dosage: 20 UG, QD
  9. POTASSIUM CHLORIDE [Concomitant]
     Dosage: UNK, UNKNOWN
     Route: 065
  10. MILK OF MAGNESIA TAB [Concomitant]
     Dosage: UNK, UNKNOWN
     Route: 065
  11. NEURONTIN [Concomitant]
     Dosage: 100 MG, UNKNOWN
     Route: 065
  12. AMIODARONE HCL [Concomitant]
     Dosage: UNK, UNKNOWN
     Route: 065
  13. BUMEX [Concomitant]
     Dosage: UNK, UNKNOWN
     Route: 065
  14. CALCIUM [Concomitant]
     Dosage: UNK, UNKNOWN
     Route: 065
  15. VITAMIN D [Concomitant]
     Dosage: UNK, UNKNOWN
     Route: 065
  16. GLUCOSAMINE [Concomitant]
     Dosage: UNK, UNKNOWN
     Route: 065
  17. FORTEO [Suspect]
     Dosage: 20 UG, QD
     Route: 065
  18. LORTAB [Concomitant]
     Dosage: UNK, PRN
     Route: 065
  19. PRAVACHOL [Concomitant]
     Dosage: UNK, UNKNOWN
     Route: 065

REACTIONS (11)
  - INTERNATIONAL NORMALISED RATIO ABNORMAL [None]
  - ASTHENIA [None]
  - CARDIAC FAILURE CONGESTIVE [None]
  - ATRIAL FIBRILLATION [None]
  - HEPATIC ENZYME ABNORMAL [None]
  - MEDICATION ERROR [None]
  - BURNING SENSATION [None]
  - ABDOMINAL PAIN [None]
  - BLOOD DISORDER [None]
  - INJECTION SITE ERYTHEMA [None]
  - PNEUMONIA [None]
